FAERS Safety Report 5082361-6 (Version None)
Quarter: 2006Q3

REPORT INFORMATION
  Report Type: 
  Country: None (occurrence: None)
  Receive Date: 20060814
  Receipt Date: 20060802
  Transmission Date: 20061208
  Serious: Yes (Other)
  Sender: FDA-Public Use
  Company Number: 2006095266

PATIENT
  Sex: Male

DRUGS (1)
  1. VISINE L.R. [Suspect]
     Dosage: ONE DROP IN RIGHT EYE, OPHTHALMIC
     Route: 047
     Dates: start: 20060617

REACTIONS (2)
  - CHEMICAL BURNS OF EYE [None]
  - CHEMICAL EYE INJURY [None]
